FAERS Safety Report 6742005-1 (Version None)
Quarter: 2010Q2

REPORT INFORMATION
  Report Type: 
  Country: None (occurrence: None)
  Receive Date: 20100526
  Receipt Date: 20100521
  Transmission Date: 20101027
  Serious: Yes (Other)
  Sender: FDA-Public Use
  Company Number: US-JNJFOC-20091101901

PATIENT
  Age: 73 Year
  Sex: Female
  Weight: 68.6 kg

DRUGS (4)
  1. LEVAQUIN [Suspect]
     Indication: PNEUMONIA
     Route: 042
  2. LEVAQUIN [Suspect]
     Route: 042
  3. TYLENOL (CAPLET) [Suspect]
     Route: 065
  4. TYLENOL (CAPLET) [Suspect]
     Indication: DRUG USE FOR UNKNOWN INDICATION
     Route: 065

REACTIONS (2)
  - ACUTE HEPATIC FAILURE [None]
  - DRUG TOXICITY [None]
